FAERS Safety Report 9235276 (Version 3)
Quarter: 2013Q3

REPORT INFORMATION
  Report Type: Spontaneous
  Country: JP (occurrence: JP)
  Receive Date: 20130417
  Receipt Date: 20130712
  Transmission Date: 20140515
  Serious: Yes (Other)
  Sender: FDA-Public Use
  Company Number: JP-PFIZER INC-2013107323

PATIENT
  Age: 81 Year
  Sex: Female
  Weight: 34.7 kg

DRUGS (3)
  1. SELARA [Suspect]
     Indication: PRIMARY HYPERALDOSTERONISM
     Dosage: 100 MG, 1X/DAY
     Route: 048
     Dates: end: 20130403
  2. DIOVAN [Concomitant]
     Indication: HYPERTENSION
     Dosage: 80 MG, 1X/DAY
     Route: 048
     Dates: start: 20130131
  3. OLMETEC [Concomitant]
     Indication: HYPERTENSION
     Dosage: 20 MG, 1X/DAY
     Route: 048
     Dates: start: 20130131

REACTIONS (1)
  - Hyponatraemia [Recovering/Resolving]
